FAERS Safety Report 20664492 (Version 1)
Quarter: 2022Q2

REPORT INFORMATION
  Report Type: Spontaneous
  Country: US (occurrence: US)
  Receive Date: 20220401
  Receipt Date: 20220401
  Transmission Date: 20220721
  Serious: No
  Sender: FDA-Public Use
  Company Number: US-PFIZER INC-2021829744

PATIENT
  Age: 49 Year
  Sex: Female
  Weight: 54.43 kg

DRUGS (7)
  1. IBRANCE [Suspect]
     Active Substance: PALBOCICLIB
     Indication: Breast cancer female
     Dosage: 125 MG, CYCLIC (DAILY FOR 21 DAYS)
     Route: 048
  2. METHOCARBAMOL [Concomitant]
     Active Substance: METHOCARBAMOL
     Dosage: 750 MG
  3. PERCOCET [Concomitant]
     Active Substance: ACETAMINOPHEN\OXYCODONE HYDROCHLORIDE
     Dosage: UNK
  4. OXYCONTIN [Concomitant]
     Active Substance: OXYCODONE HYDROCHLORIDE
     Dosage: 20 MG
  5. CALCIUM [Concomitant]
     Active Substance: CALCIUM
     Dosage: UNK
  6. GABAPENTIN [Concomitant]
     Active Substance: GABAPENTIN
     Dosage: UNK
  7. LETROZOLE [Concomitant]
     Active Substance: LETROZOLE
     Dosage: 2.5 MG

REACTIONS (6)
  - Fatigue [Unknown]
  - Bone disorder [Unknown]
  - Muscle spasms [Unknown]
  - Bone lesion [Unknown]
  - Asthenia [Unknown]
  - Loss of personal independence in daily activities [Unknown]
